FAERS Safety Report 5680675-X (Version None)
Quarter: 2008Q1

REPORT INFORMATION
  Report Type: 
  Country: None (occurrence: None)
  Receive Date: 20080326
  Receipt Date: 20071220
  Transmission Date: 20080703
  Serious: No
  Sender: FDA-Public Use
  Company Number: US-BAUSCH-2007BL004600

PATIENT
  Age: 42 Year
  Sex: Female

DRUGS (3)
  1. LOTEMAX [Suspect]
     Indication: KERATITIS
     Route: 047
     Dates: start: 20071214, end: 20071214
  2. LOTEMAX [Suspect]
     Route: 047
     Dates: start: 20071220
  3. RESTASIS [Concomitant]
     Indication: KERATOCONJUNCTIVITIS SICCA
     Route: 047
     Dates: start: 20060101

REACTIONS (2)
  - DYSPNOEA [None]
  - HEADACHE [None]
